FAERS Safety Report 24396411 (Version 1)
Quarter: 2024Q4

REPORT INFORMATION
  Report Type: Report from Study
  Country: JP (occurrence: JP)
  Receive Date: 20241004
  Receipt Date: 20241004
  Transmission Date: 20250115
  Serious: Yes (Other)
  Sender: RANBAXY
  Company Number: JP-SUN PHARMACEUTICAL INDUSTRIES LTD-2024RR-471456

PATIENT
  Age: 72 Year
  Sex: Male

DRUGS (7)
  1. PEMETREXED [Suspect]
     Active Substance: PEMETREXED
     Indication: Lung adenocarcinoma
     Dosage: UNK
     Route: 065
  2. ERLOTINIB [Suspect]
     Active Substance: ERLOTINIB
     Indication: Lung adenocarcinoma
     Dosage: UNK
     Route: 065
  3. CISPLATIN [Suspect]
     Active Substance: CISPLATIN
     Indication: Lung adenocarcinoma
     Dosage: UNK
     Route: 065
  4. DOCETAXEL [Suspect]
     Active Substance: DOCETAXEL
     Indication: Lung adenocarcinoma
     Dosage: UNK
     Route: 065
  5. BEVACIZUMAB [Suspect]
     Active Substance: BEVACIZUMAB
     Indication: Lung adenocarcinoma
     Dosage: UNK
     Route: 065
  6. RAMUCIRUMAB [Suspect]
     Active Substance: RAMUCIRUMAB
     Indication: Lung adenocarcinoma
     Dosage: UNK
     Route: 065
  7. NIVOLUMAB [Concomitant]
     Active Substance: NIVOLUMAB
     Indication: Lung adenocarcinoma
     Dosage: UNK
     Route: 065

REACTIONS (3)
  - Neutropenia [Recovering/Resolving]
  - Pneumonia [Unknown]
  - Neoplasm progression [Unknown]
